FAERS Safety Report 5819610-X (Version None)
Quarter: 2008Q3

REPORT INFORMATION
  Report Type: 
  Country: None (occurrence: None)
  Receive Date: 20080723
  Receipt Date: 20080707
  Transmission Date: 20090109
  Serious: No
  Sender: FDA-Public Use
  Company Number: US-BOEHRINGER INGELHEIM GMBH, GERMANY-2008-BP-10602BP

PATIENT
  Sex: Female

DRUGS (5)
  1. SPIRIVA [Suspect]
     Indication: EMPHYSEMA
  2. ADVAIR DISKUS 100/50 [Concomitant]
  3. COMBIVENT [Concomitant]
  4. SINGULAIR [Concomitant]
  5. NEBULIZER TREATMENTS (UNSPECIFIED) [Concomitant]

REACTIONS (1)
  - DRUG INEFFECTIVE [None]
